FAERS Safety Report 7088763-0 (Version None)
Quarter: 2010Q4

REPORT INFORMATION
  Report Type: 
  Country: None (occurrence: None)
  Receive Date: 20101108
  Receipt Date: 20101025
  Transmission Date: 20110411
  Serious: Yes (Hospitalization)
  Sender: FDA-Public Use
  Company Number: PHHY2010JP17388

PATIENT
  Sex: Male
  Weight: 72 kg

DRUGS (8)
  1. DIOVAN [Suspect]
     Indication: HYPERTENSION
     Dosage: 40 MG, QD
     Route: 048
     Dates: start: 20080219, end: 20090324
  2. DIOVAN [Suspect]
     Dosage: 80 MG, QD
     Route: 048
     Dates: start: 20090325, end: 20090331
  3. MEVALOTIN [Concomitant]
     Dosage: 10 MG, UNK
     Route: 048
     Dates: start: 20080422
  4. CRESTOR [Concomitant]
     Dosage: 2.5 MG, UNK
     Route: 048
     Dates: start: 20070718, end: 20080421
  5. GASTER D [Concomitant]
     Dosage: 40 MG, UNK
     Route: 048
     Dates: start: 20050509
  6. TICLOPIDINE HCL [Concomitant]
     Dosage: 400 MG, UNK
     Route: 048
     Dates: start: 20050509
  7. GLUCOBAY [Concomitant]
     Dosage: 300 MG, UNK
     Route: 048
     Dates: start: 20050509
  8. NATEGLINIDE [Concomitant]
     Dosage: 90 MG, UNK
     Route: 048
     Dates: start: 20050707

REACTIONS (5)
  - ATAXIA [None]
  - BLOOD PRESSURE INADEQUATELY CONTROLLED [None]
  - CEREBRAL INFARCTION [None]
  - DYSLALIA [None]
  - HEMIPLEGIA [None]
